FAERS Safety Report 4807356-6 (Version None)
Quarter: 2005Q4

REPORT INFORMATION
  Report Type: 
  Country: None (occurrence: None)
  Receive Date: 20051020
  Receipt Date: 20051012
  Transmission Date: 20060501
  Serious: Yes (Death)
  Sender: FDA-Public Use
  Company Number: 2005-10-0886

PATIENT
  Age: 45 Year
  Sex: Male

DRUGS (5)
  1. ALBUTEROL [Suspect]
     Indication: ASTHMA
     Dosage: ORAL AER INH
     Route: 055
  2. PEG-INTRON (PEGINTERFERON ALFA-2B) INJECTABLE POWDER [Concomitant]
  3. RIBAVIRIN [Concomitant]
  4. VICODIN [Concomitant]
  5. PAXIL [Concomitant]

REACTIONS (3)
  - ACUTE RESPIRATORY DISTRESS SYNDROME [None]
  - DRUG INEFFECTIVE [None]
  - PNEUMONIA [None]
